FAERS Safety Report 21681099 (Version 1)
Quarter: 2022Q4

REPORT INFORMATION
  Report Type: Report from Study
  Country: US (occurrence: US)
  Receive Date: 20221205
  Receipt Date: 20221205
  Transmission Date: 20230112
  Serious: No
  Sender: FDA-Public Use
  Company Number: US-ABBVIE-4223164

PATIENT
  Sex: Male

DRUGS (1)
  1. HUMIRA [Suspect]
     Active Substance: ADALIMUMAB
     Indication: Psoriatic arthropathy
     Dosage: CITRATE FREE, STRENGTH:-40 MG
     Route: 058

REACTIONS (4)
  - Pain [Recovering/Resolving]
  - Injection site bruising [Unknown]
  - Injection site haemorrhage [Unknown]
  - Hepatic steatosis [Unknown]
